FAERS Safety Report 5688672-5 (Version None)
Quarter: 2008Q1

REPORT INFORMATION
  Report Type: 
  Country: None (occurrence: None)
  Receive Date: 20080331
  Receipt Date: 20080320
  Transmission Date: 20080703
  Serious: Yes (Other)
  Sender: FDA-Public Use
  Company Number: PHRM2008FR01101

PATIENT
  Age: 34 Year
  Sex: Female

DRUGS (1)
  1. LAMISIL [Suspect]
     Indication: FUNGAL INFECTION
     Dosage: 250 MG, QD
     Route: 048
     Dates: start: 20080319

REACTIONS (5)
  - BACK PAIN [None]
  - DYSPHAGIA [None]
  - MALAISE [None]
  - NECK PAIN [None]
  - PYREXIA [None]
